FAERS Safety Report 9435886 (Version 1)
Quarter: 2013Q3

REPORT INFORMATION
  Report Type: Spontaneous
  Country: US (occurrence: None)
  Receive Date: 20130801
  Receipt Date: 20130801
  Transmission Date: 20140515
  Serious: Yes (Other)
  Sender: FDA-Public Use
  Company Number: None

PATIENT
  Age: 65 Year
  Sex: Male

DRUGS (1)
  1. COAGULATION FACTOR IX HUMAN [Suspect]
     Route: 042

REACTIONS (2)
  - Product label confusion [None]
  - Incorrect dose administered [None]
